FAERS Safety Report 10434392 (Version 1)
Quarter: 2014Q3

REPORT INFORMATION
  Report Type: Spontaneous
  Country: CN (occurrence: CN)
  Receive Date: 20140905
  Receipt Date: 20140905
  Transmission Date: 20150326
  Serious: Yes (Other)
  Sender: FDA-Public Use
  Company Number: CN-ALLERGAN-1418996US

PATIENT
  Age: 70 Year
  Sex: Male

DRUGS (3)
  1. BRIMONIDINE;TIMOLOL UNK [Suspect]
     Active Substance: BRIMONIDINE TARTRATE\TIMOLOL MALEATE
     Indication: OCULAR HYPERTENSION
     Dosage: INSTILL THREE TIMES A DAY
     Route: 047
  2. ACETAZOLAMIDE. [Suspect]
     Active Substance: ACETAZOLAMIDE
     Indication: OCULAR HYPERTENSION
     Route: 048
  3. MANNITOL. [Suspect]
     Active Substance: MANNITOL
     Indication: OCULAR HYPERTENSION
     Route: 042

REACTIONS (1)
  - Intraocular pressure increased [Recovered/Resolved]
